FAERS Safety Report 18367500 (Version 2)
Quarter: 2020Q4

REPORT INFORMATION
  Report Type: Spontaneous
  Country: US (occurrence: US)
  Receive Date: 20201009
  Receipt Date: 20201105
  Transmission Date: 20210114
  Serious: Yes (Hospitalization, Other)
  Sender: FDA-Public Use
  Company Number: US-PFIZER INC-2020387598

PATIENT
  Age: 43 Year
  Sex: Female
  Weight: 94.79 kg

DRUGS (13)
  1. OXYCODONE [Suspect]
     Active Substance: OXYCODONE
     Indication: PAIN
     Dosage: UNK, 3X/DAY
     Dates: start: 2010
  2. PERCOCET [Concomitant]
     Active Substance: ACETAMINOPHEN\OXYCODONE HYDROCHLORIDE
     Dosage: UNK
     Dates: start: 2010
  3. XANAX [Suspect]
     Active Substance: ALPRAZOLAM
     Indication: NECK INJURY
     Dosage: 2 MG
  4. XANAX [Suspect]
     Active Substance: ALPRAZOLAM
     Indication: BACK INJURY
     Dosage: 6 MG, 3X/DAY
     Dates: start: 2010
  5. OXYCODONE [Suspect]
     Active Substance: OXYCODONE
     Indication: NECK INJURY
     Dosage: 30 MG (5XDAY)
     Dates: start: 2010
  6. METHADONE [Concomitant]
     Active Substance: METHADONE HYDROCHLORIDE
     Dosage: UNK
     Dates: start: 2016
  7. XANAX [Suspect]
     Active Substance: ALPRAZOLAM
     Indication: ANXIETY
  8. OXYCONTIN [Suspect]
     Active Substance: OXYCODONE HYDROCHLORIDE
     Indication: BACK INJURY
  9. OXYCONTIN [Suspect]
     Active Substance: OXYCODONE HYDROCHLORIDE
     Indication: PAIN
  10. OXYCODONE [Suspect]
     Active Substance: OXYCODONE
     Indication: BACK INJURY
  11. OXYCODONE [Suspect]
     Active Substance: OXYCODONE
     Indication: BREAKTHROUGH PAIN
  12. OXYCONTIN [Suspect]
     Active Substance: OXYCODONE HYDROCHLORIDE
     Indication: NECK INJURY
     Dosage: 80 MG, 3X/DAY
     Dates: start: 2010
  13. DILAUDID [Concomitant]
     Active Substance: HYDROMORPHONE HYDROCHLORIDE
     Dosage: UNK
     Dates: start: 2010

REACTIONS (2)
  - Drug dependence [Recovered/Resolved]
  - Psychotic disorder [Unknown]

NARRATIVE: CASE EVENT DATE: 2010
